FAERS Safety Report 19457431 (Version 1)
Quarter: 2021Q2

REPORT INFORMATION
  Report Type: Spontaneous
  Country: US (occurrence: US)
  Receive Date: 20210624
  Receipt Date: 20210624
  Transmission Date: 20210717
  Serious: Yes (Death, Other)
  Sender: FDA-Public Use
  Company Number: US-GLAXOSMITHKLINE-US2021GSK134896

PATIENT
  Sex: Male

DRUGS (2)
  1. RANITIDINE. [Suspect]
     Active Substance: RANITIDINE
     Indication: ABDOMINAL DISCOMFORT
     Dosage: UNK, 4 ? 5 TIMES A WEEK ? AS NEEDED
     Route: 065
     Dates: start: 201301, end: 202002
  2. RANITIDINE. [Suspect]
     Active Substance: RANITIDINE
     Indication: ABDOMINAL DISCOMFORT
     Dosage: UNK, 4 ? 5 TIMES A WEEK ? AS NEEDED
     Route: 065
     Dates: start: 201301, end: 202002

REACTIONS (1)
  - Pancreatic carcinoma [Fatal]
